FAERS Safety Report 6896293-1 (Version None)
Quarter: 2010Q3

REPORT INFORMATION
  Report Type: 
  Country: None (occurrence: None)
  Receive Date: 20100802
  Receipt Date: 20100727
  Transmission Date: 20110219
  Serious: Yes (Death)
  Sender: FDA-Public Use
  Company Number: B0667750A

PATIENT
  Sex: Male
  Weight: 53 kg

DRUGS (13)
  1. ALKERAN [Suspect]
     Indication: CORD BLOOD TRANSPLANT THERAPY
     Dosage: 40MG PER DAY
     Route: 042
     Dates: start: 20040517, end: 20040518
  2. FLUDARA [Suspect]
     Indication: CORD BLOOD TRANSPLANT THERAPY
     Dosage: 25MG PER DAY
     Route: 042
     Dates: start: 20040512, end: 20040516
  3. GRAN [Concomitant]
     Dates: start: 20040521, end: 20040611
  4. CYCLOSPORINE [Concomitant]
     Indication: IMMUNOSUPPRESSION
     Dosage: 160MG PER DAY
     Route: 065
     Dates: start: 20040519, end: 20040611
  5. MEROPEN [Concomitant]
     Dosage: 2G PER DAY
     Route: 042
     Dates: start: 20040502, end: 20040526
  6. MODACIN [Concomitant]
     Dosage: 4G PER DAY
     Route: 042
     Dates: start: 20040527, end: 20040611
  7. FUNGUARD [Concomitant]
     Dosage: 150MG PER DAY
     Route: 042
     Dates: start: 20040502, end: 20040611
  8. VANCOMYCIN [Concomitant]
     Dosage: 1G PER DAY
     Route: 042
     Dates: start: 20040504, end: 20040611
  9. FULCALIQ [Concomitant]
     Dosage: 903ML PER DAY
     Route: 042
     Dates: start: 20040610, end: 20040612
  10. COTRIM [Concomitant]
     Dosage: 4IUAX PER DAY
     Route: 048
     Dates: start: 20040510, end: 20040518
  11. CIPROFLOXACIN HCL [Concomitant]
     Dosage: 600MG PER DAY
     Route: 048
     Dates: start: 20040512, end: 20040520
  12. ACINON [Concomitant]
     Dosage: 150MG PER DAY
     Route: 048
     Dates: start: 20040507, end: 20040520
  13. UNKNOWN DRUG [Concomitant]
     Dosage: 1.25G PER DAY
     Route: 048
     Dates: start: 20040515, end: 20040520

REACTIONS (1)
  - PNEUMONIA [None]
